FAERS Safety Report 17018045 (Version 9)
Quarter: 2021Q4

REPORT INFORMATION
  Report Type: Report from Study
  Country: EC (occurrence: EC)
  Receive Date: 20191111
  Receipt Date: 20211018
  Transmission Date: 20220303
  Serious: Yes (Other)
  Sender: FDA-Public Use
  Company Number: PHHY2014EC146878

PATIENT
  Age: 69 Year
  Sex: Male
  Weight: 78.46 kg

DRUGS (11)
  1. SANDOSTATIN LAR DEPOT [Suspect]
     Active Substance: OCTREOTIDE ACETATE
     Indication: Acromegaly
     Dosage: 20 MG, QMO
     Route: 030
     Dates: start: 2007
  2. SANDOSTATIN LAR DEPOT [Suspect]
     Active Substance: OCTREOTIDE ACETATE
     Dosage: 20 MG, QMO (ONCE MONTHLY)
     Route: 030
  3. SANDOSTATIN LAR DEPOT [Suspect]
     Active Substance: OCTREOTIDE ACETATE
     Dosage: 20 MG, QMO
     Route: 030
     Dates: start: 20141021
  4. SANDOSTATIN LAR DEPOT [Suspect]
     Active Substance: OCTREOTIDE ACETATE
     Dosage: 20 MG, QMO
     Route: 030
     Dates: start: 20181105
  5. SANDOSTATIN LAR DEPOT [Suspect]
     Active Substance: OCTREOTIDE ACETATE
     Dosage: 20 MG, QMO
     Route: 030
     Dates: start: 20181218
  6. SANDOSTATIN LAR DEPOT [Suspect]
     Active Substance: OCTREOTIDE ACETATE
     Dosage: 20 MG, QMO
     Route: 030
     Dates: start: 20190320, end: 20210404
  7. SANDOSTATIN LAR DEPOT [Suspect]
     Active Substance: OCTREOTIDE ACETATE
     Dosage: 20 MG, QMO
     Route: 030
     Dates: start: 20210729
  8. METFORMIN HYDROCHLORIDE [Suspect]
     Active Substance: METFORMIN HYDROCHLORIDE
     Indication: Diabetes mellitus
     Dosage: 850 MG, QD
     Route: 048
     Dates: start: 20151109
  9. METFORMIN HYDROCHLORIDE [Suspect]
     Active Substance: METFORMIN HYDROCHLORIDE
     Dosage: 1 DF, QD
     Route: 048
     Dates: start: 201906
  10. NEOGAIVAL [Concomitant]
     Indication: Sleep disorder
     Dosage: 2 MG, QD (AT NIGHT)
     Route: 030
     Dates: start: 20161120
  11. ALPRAZOLAM [Concomitant]
     Active Substance: ALPRAZOLAM
     Indication: Sleep disorder
     Dosage: UNK, QD (1 AT NIGHT)
     Route: 065

REACTIONS (29)
  - Diabetes mellitus [Unknown]
  - Blindness [Unknown]
  - Deafness [Unknown]
  - Depressed mood [Not Recovered/Not Resolved]
  - Prostatitis [Not Recovered/Not Resolved]
  - Abdominal pain [Recovering/Resolving]
  - Prostatic disorder [Unknown]
  - Bone deformity [Not Recovered/Not Resolved]
  - Speech disorder [Not Recovered/Not Resolved]
  - Weight decreased [Not Recovered/Not Resolved]
  - Hypertension [Unknown]
  - Chills [Recovered/Resolved]
  - Herpes virus infection [Not Recovered/Not Resolved]
  - Erythema [Not Recovered/Not Resolved]
  - Rash [Not Recovered/Not Resolved]
  - Bone pain [Unknown]
  - Swelling [Unknown]
  - Oropharyngeal discomfort [Unknown]
  - Urine output increased [Not Recovered/Not Resolved]
  - Eating disorder [Unknown]
  - Blood glucose increased [Unknown]
  - Fluid retention [Unknown]
  - Bone erosion [Unknown]
  - Decreased appetite [Unknown]
  - Depression [Unknown]
  - Headache [Recovered/Resolved]
  - Headache [Not Recovered/Not Resolved]
  - Inappropriate schedule of product administration [Unknown]
  - Drug ineffective [Unknown]

NARRATIVE: CASE EVENT DATE: 20120101
